FAERS Safety Report 19062668 (Version 2)
Quarter: 2022Q2

REPORT INFORMATION
  Report Type: Spontaneous
  Country: SI (occurrence: None)
  Receive Date: 20210326
  Receipt Date: 20220411
  Transmission Date: 20220721
  Serious: Yes (Congenital Anomaly)
  Sender: FDA-Public Use
  Company Number: SI-MERCK HEALTHCARE KGAA-9227296

PATIENT
  Age: 0 Year

DRUGS (3)
  1. MAVENCLAD [Suspect]
     Active Substance: CLADRIBINE
     Indication: Relapsing-remitting multiple sclerosis
     Dosage: YEAR ONE WEEK ONE THERAPY: TWO DOSAGE FORMS ON DAYS 1 TO 2 AND ONE DOSAGE FORM ON DAYS 3 TO 5
     Dates: start: 20200207, end: 20200211
  2. MAVENCLAD [Suspect]
     Active Substance: CLADRIBINE
     Dosage: YEAR ONE WEEK TWO THERAPY: TWO DOSAGE FORMS ON DAYS 1 TO 2 AND ONE DOSAGE FORM ON DAYS 3 TO 5
     Dates: start: 20200310, end: 20200314
  3. MAVENCLAD [Suspect]
     Active Substance: CLADRIBINE
     Dosage: YEAR TWO WEEK ONE THERAPY: TWO DOSAGE FORMS ON DAYS 1 TO 2 AND ONE DOSAGE FORM ON DAYS 3 TO 5
     Dates: start: 20210505, end: 20210509

REACTIONS (1)
  - Foetal chromosome abnormality [Unknown]

NARRATIVE: CASE EVENT DATE: 20201130
